FAERS Safety Report 4724739-3 (Version None)
Quarter: 2005Q3

REPORT INFORMATION
  Report Type: 
  Country: None (occurrence: None)
  Receive Date: 20050726
  Receipt Date: 20050708
  Transmission Date: 20060218
  Serious: Yes (Other)
  Sender: FDA-Public Use
  Company Number: US-GLAXOSMITHKLINE-A0565560A

PATIENT
  Sex: Female

DRUGS (8)
  1. LAMICTAL [Suspect]
     Indication: OBSESSIVE-COMPULSIVE DISORDER
     Route: 048
  2. ZOLOFT [Concomitant]
  3. LANOXIN [Concomitant]
  4. FUROSEMIDE [Concomitant]
  5. MICRO-K [Concomitant]
  6. ASPIRIN [Concomitant]
  7. COUMADIN [Concomitant]
  8. LIPITOR [Concomitant]

REACTIONS (7)
  - CRYING [None]
  - DIZZINESS [None]
  - DRUG ADMINISTRATION ERROR [None]
  - EMOTIONAL DISORDER [None]
  - MALAISE [None]
  - NAUSEA [None]
  - SPLENOMEGALY [None]
